FAERS Safety Report 5699239-7 (Version None)
Quarter: 2008Q2

REPORT INFORMATION
  Report Type: 
  Country: None (occurrence: None)
  Receive Date: 20080407
  Receipt Date: 20080407
  Transmission Date: 20081010
  Serious: Yes (Hospitalization)
  Sender: FDA-Public Use
  Company Number: None

PATIENT
  Age: 79 Year
  Sex: Male
  Weight: 75.75 kg

DRUGS (1)
  1. SIMVASTATIN [Suspect]
     Indication: HYPERLIPIDAEMIA
     Dosage: 40MG EVERY DAY PO
     Route: 048
     Dates: start: 20041115, end: 20060627

REACTIONS (4)
  - ABDOMINAL PAIN [None]
  - BLOOD PRESSURE SYSTOLIC INCREASED [None]
  - LIVER FUNCTION TEST ABNORMAL [None]
  - WEIGHT DECREASED [None]
